FAERS Safety Report 18188148 (Version 1)
Quarter: 2020Q3

REPORT INFORMATION
  Report Type: Spontaneous
  Country: US (occurrence: US)
  Receive Date: 20200824
  Receipt Date: 20200824
  Transmission Date: 20201103
  Serious: Yes (Hospitalization, Other)
  Sender: FDA-Public Use
  Company Number: US-PERRIGO-20US011636

PATIENT
  Age: 68 Year
  Sex: Male
  Weight: 68.03 kg

DRUGS (5)
  1. GLUCOPHAGE [Concomitant]
     Active Substance: METFORMIN HYDROCHLORIDE
     Indication: PRODUCT USED FOR UNKNOWN INDICATION
     Dosage: UNK
     Route: 065
  2. HYDROCODONE [Concomitant]
     Active Substance: HYDROCODONE
     Indication: PRODUCT USED FOR UNKNOWN INDICATION
     Dosage: UNK
     Route: 065
  3. JANUVIA [Concomitant]
     Active Substance: SITAGLIPTIN PHOSPHATE
     Indication: PRODUCT USED FOR UNKNOWN INDICATION
     Dosage: UNK
     Route: 065
  4. OXYCODONE [Suspect]
     Active Substance: OXYCODONE
     Indication: PRODUCT USED FOR UNKNOWN INDICATION
     Dosage: UNKNOWN, UNKNOWN
     Route: 065
  5. POTASSIUM CHLORIDE. [Suspect]
     Active Substance: POTASSIUM CHLORIDE
     Indication: BLOOD POTASSIUM DECREASED
     Dosage: 8 MEQ, BID
     Route: 048

REACTIONS (13)
  - Abdominal pain upper [Recovered/Resolved]
  - Blood potassium increased [Recovered/Resolved]
  - Kidney infection [Recovered/Resolved]
  - Renal failure [Recovered/Resolved]
  - Delusion [Unknown]
  - Insomnia [Recovered/Resolved]
  - Pancreatitis [Recovered/Resolved]
  - Hallucination [Recovered/Resolved]
  - Weight decreased [Unknown]
  - Dysuria [Recovered/Resolved]
  - Decreased appetite [Recovered/Resolved]
  - Dependence on respirator [Recovered/Resolved]
  - Pneumonia [Recovered/Resolved]

NARRATIVE: CASE EVENT DATE: 2016
